FAERS Safety Report 20520433 (Version 1)
Quarter: 2022Q1

REPORT INFORMATION
  Report Type: Spontaneous
  Country: RU (occurrence: None)
  Receive Date: 20220225
  Receipt Date: 20220225
  Transmission Date: 20220424
  Serious: Yes (Life-Threatening, Other)
  Sender: FDA-Public Use
  Company Number: 2022A083884

PATIENT
  Sex: Female

DRUGS (1)
  1. PULMICORT TURBUHALER [Suspect]
     Active Substance: BUDESONIDE
     Route: 055

REACTIONS (6)
  - Asphyxia [Unknown]
  - Oedema [Unknown]
  - Dyspnoea [Unknown]
  - Sleep disorder [Unknown]
  - Panic disorder [Not Recovered/Not Resolved]
  - Anxiety [Not Recovered/Not Resolved]
